FAERS Safety Report 5139382-4 (Version None)
Quarter: 2006Q4

REPORT INFORMATION
  Report Type: 
  Country: None (occurrence: None)
  Receive Date: 20061026
  Receipt Date: 20061026
  Transmission Date: 20070319
  Serious: Yes (Disabling, Other)
  Sender: FDA-Public Use
  Company Number: None

PATIENT
  Age: 58 Year
  Sex: Female
  Weight: 60.782 kg

DRUGS (1)
  1. BONIVA [Suspect]
     Indication: BONE DENSITY DECREASED
     Dosage: 150 MG 1 PER MO ORAL
     Route: 048
     Dates: start: 20051001, end: 20060301

REACTIONS (7)
  - ARTHRALGIA [None]
  - BACK PAIN [None]
  - BONE DISORDER [None]
  - DIARRHOEA [None]
  - ILL-DEFINED DISORDER [None]
  - INTERVERTEBRAL DISC COMPRESSION [None]
  - TREMOR [None]
